FAERS Safety Report 12822562 (Version 2)
Quarter: 2016Q4

REPORT INFORMATION
  Report Type: Spontaneous
  Country: US (occurrence: US)
  Receive Date: 20161007
  Receipt Date: 20161019
  Transmission Date: 20170207
  Serious: No
  Sender: FDA-Public Use
  Company Number: US-PFIZER INC-2016467513

PATIENT
  Age: 59 Year
  Sex: Male

DRUGS (1)
  1. SUTENT [Suspect]
     Active Substance: SUNITINIB MALATE
     Indication: RENAL CANCER
     Dosage: 25 MG, CYCLIC (TAKE 2 CAPSULE BY MOUTH DAILY FOR 4 WEEKS ON AND 2 WEEKS OFF)
     Route: 048
     Dates: start: 201403

REACTIONS (3)
  - Fatigue [Recovered/Resolved]
  - Myalgia [Recovered/Resolved]
  - Malaise [Unknown]
